FAERS Safety Report 4348359-8 (Version None)
Quarter: 2004Q2

REPORT INFORMATION
  Report Type: 
  Country: None (occurrence: None)
  Receive Date: 20040427
  Receipt Date: 20040414
  Transmission Date: 20050107
  Serious: Yes (Hospitalization)
  Sender: FDA-Public Use
  Company Number: PHBS2004JP05194

PATIENT
  Age: 52 Year
  Sex: Male

DRUGS (2)
  1. VOLTAREN [Suspect]
     Indication: GOUT
     Route: 048
  2. COLCHICINE [Suspect]
     Indication: GOUT
     Route: 048

REACTIONS (3)
  - GOUTY ARTHRITIS [None]
  - REBOUND EFFECT [None]
  - RENAL FAILURE [None]
